FAERS Safety Report 8554381-8 (Version None)
Quarter: 2012Q3

REPORT INFORMATION
  Report Type: 
  Country: None (occurrence: None)
  Receive Date: 20120731
  Receipt Date: 20120725
  Transmission Date: 20120928
  Serious: Yes (Life-Threatening)
  Sender: FDA-Public Use
  Company Number: JP-CELGENEUS-087-50794-12072952

PATIENT
  Sex: Male

DRUGS (6)
  1. VIDAZA [Suspect]
     Indication: MYELODYSPLASTIC SYNDROME
     Dosage: 75 MILLIGRAM/SQ. METER
     Route: 058
     Dates: start: 20120424, end: 20120430
  2. PRIMOBOLAN-DEPOT INJ [Concomitant]
     Route: 065
  3. RABEPRAZOLE SODIUM [Concomitant]
     Route: 065
     Dates: start: 20120601
  4. URSO 250 [Concomitant]
     Route: 065
  5. VIDAZA [Suspect]
     Dosage: 75 MILLIGRAM/SQ. METER
     Route: 058
     Dates: start: 20120523, end: 20120526
  6. VIDAZA [Suspect]
     Dosage: 75 MILLIGRAM/SQ. METER
     Route: 058
     Dates: start: 20120606, end: 20120610

REACTIONS (1)
  - FEBRILE NEUTROPENIA [None]
